FAERS Safety Report 21060008 (Version 1)
Quarter: 2022Q3

REPORT INFORMATION
  Report Type: Spontaneous
  Country: US (occurrence: US)
  Receive Date: 20220708
  Receipt Date: 20220708
  Transmission Date: 20221027
  Serious: No
  Sender: FDA-Public Use
  Company Number: US-SA-SAC20220630001207

PATIENT
  Sex: Male

DRUGS (1)
  1. DUPIXENT [Suspect]
     Active Substance: DUPILUMAB
     Indication: Dermatitis atopic
     Dosage: 300 MG, Q4W
     Route: 058
     Dates: start: 20220223

REACTIONS (6)
  - Ocular hyperaemia [Unknown]
  - Skin fissures [Unknown]
  - Swelling [Unknown]
  - Pain in extremity [Unknown]
  - Erythema [Unknown]
  - Dry eye [Unknown]
